FAERS Safety Report 5358543-2 (Version None)
Quarter: 2007Q2

REPORT INFORMATION
  Report Type: 
  Country: None (occurrence: None)
  Receive Date: 20070613
  Receipt Date: 20070613
  Transmission Date: 20071010
  Serious: Yes (Life-Threatening)
  Sender: FDA-Public Use
  Company Number: None

PATIENT
  Age: 19 Year
  Sex: Female
  Weight: 104.3273 kg

DRUGS (2)
  1. NUVARING [Suspect]
     Indication: CONTRACEPTION
     Dosage: ONE RING MONTHLY VAG
     Route: 067
     Dates: start: 20070105, end: 20070325
  2. ZOLOFT [Concomitant]

REACTIONS (1)
  - PULMONARY EMBOLISM [None]
